FAERS Safety Report 17556666 (Version 1)
Quarter: 2020Q1

REPORT INFORMATION
  Report Type: Spontaneous
  Country: US (occurrence: US)
  Receive Date: 20200311
  Receipt Date: 20200311
  Transmission Date: 20200409
  Serious: Yes (Hospitalization)
  Sender: FDA-Public Use
  Company Number: None

PATIENT
  Age: 68 Year
  Sex: Male

DRUGS (1)
  1. CLOPIDOGREL (CLOPIDOGREL BISULFATE 75MG TAB) [Suspect]
     Active Substance: CLOPIDOGREL BISULFATE
     Indication: CORONARY ARTERY DISEASE
     Route: 048
     Dates: start: 20200103, end: 20200303

REACTIONS (5)
  - Therapy cessation [None]
  - Haemorrhoidal haemorrhage [None]
  - Haematuria [None]
  - Haematochezia [None]
  - Bladder mass [None]

NARRATIVE: CASE EVENT DATE: 20200301
